FAERS Safety Report 8688185 (Version 4)
Quarter: 2012Q4

REPORT INFORMATION
  Report Type: Report from Study
  Country: JP (occurrence: JP)
  Receive Date: 20120727
  Receipt Date: 20121026
  Transmission Date: 20130627
  Serious: Yes (Hospitalization)
  Sender: FDA-Public Use
  Company Number: JP-JNJFOC-20120711043

PATIENT
  Age: 65 None
  Sex: Male
  Weight: 71 kg

DRUGS (16)
  1. INVEGA [Suspect]
     Indication: SCHIZOPHRENIA, PARANOID TYPE
     Route: 048
     Dates: start: 20120422, end: 20120502
  2. INVEGA [Suspect]
     Indication: SCHIZOPHRENIA, PARANOID TYPE
     Route: 048
     Dates: start: 20120408, end: 20120421
  3. INVEGA [Suspect]
     Indication: SCHIZOPHRENIA, PARANOID TYPE
     Route: 048
     Dates: start: 20110709, end: 20120407
  4. INVEGA [Suspect]
     Indication: SCHIZOPHRENIA, PARANOID TYPE
     Route: 048
     Dates: start: 20110619, end: 20110708
  5. INVEGA [Suspect]
     Indication: SCHIZOPHRENIA, PARANOID TYPE
     Route: 048
     Dates: start: 20110522, end: 20110618
  6. HIBERNA [Concomitant]
     Indication: PROPHYLAXIS
     Route: 048
  7. FLUNITRAZEPAM [Concomitant]
     Indication: SCHIZOPHRENIA, PARANOID TYPE
     Route: 048
  8. MAGNESIUM OXIDE [Concomitant]
     Indication: PROPHYLAXIS
     Route: 048
  9. SENNOSIDE [Concomitant]
     Indication: PROPHYLAXIS
     Route: 048
  10. VOGLIBOSE [Concomitant]
     Indication: DIABETES MELLITUS
     Route: 048
     Dates: start: 20110618
  11. METGLUCO [Concomitant]
     Indication: DIABETES MELLITUS
     Route: 048
     Dates: start: 20110718
  12. ZYPREXA [Concomitant]
     Indication: SCHIZOPHRENIA, PARANOID TYPE
     Route: 048
     Dates: end: 20110523
  13. LORAZEPAM [Concomitant]
     Indication: SCHIZOPHRENIA, PARANOID TYPE
     Route: 048
     Dates: start: 20120324
  14. ABILIFY [Concomitant]
     Indication: SCHIZOPHRENIA, PARANOID TYPE
     Route: 048
     Dates: start: 20110408, end: 20110428
  15. ABILIFY [Concomitant]
     Indication: SCHIZOPHRENIA, PARANOID TYPE
     Route: 048
     Dates: start: 20110429
  16. AMARYL [Concomitant]
     Indication: DIABETES MELLITUS
     Route: 048
     Dates: start: 20110625, end: 20110717

REACTIONS (3)
  - Irritability [Recovered/Resolved]
  - Hyperprolactinaemia [Unknown]
  - Malaise [Recovered/Resolved]
